FAERS Safety Report 8985339 (Version 1)
Quarter: 2012Q4

REPORT INFORMATION
  Report Type: 
  Country: US (occurrence: US)
  Receive Date: 20121226
  Receipt Date: 20121226
  Transmission Date: 20130627
  Serious: No
  Sender: FDA-Public Use
  Company Number: US-ABBOTT-12P-163-0966283-00

PATIENT
  Sex: Male
  Weight: 89.89 kg

DRUGS (2)
  1. LUPRON DEPOT 30 MG [Suspect]
     Indication: PROSTATE CANCER
     Dates: start: 2011
  2. VIAGRA [Concomitant]
     Indication: ERECTILE DYSFUNCTION
     Dates: start: 2012

REACTIONS (1)
  - Erectile dysfunction [Not Recovered/Not Resolved]
